FAERS Safety Report 8819858 (Version 3)
Quarter: 2012Q4

REPORT INFORMATION
  Report Type: 
  Country: US (occurrence: US)
  Receive Date: 20121001
  Receipt Date: 20121029
  Transmission Date: 20130627
  Serious: Yes (Death, Other)
  Sender: FDA-Public Use
  Company Number: US-ROCHE-1130025

PATIENT
  Sex: Female

DRUGS (19)
  1. HERCEPTIN [Suspect]
     Indication: BREAST CANCER METASTATIC
     Dosage: 4 mg per kilogram over 90 minutes
     Route: 065
     Dates: start: 19981015
  2. HERCEPTIN [Suspect]
     Dosage: 2 mg per kilogram every week
     Route: 065
     Dates: start: 19981022
  3. HERCEPTIN [Suspect]
     Route: 065
     Dates: start: 19981029
  4. HERCEPTIN [Suspect]
     Route: 065
     Dates: start: 19981120
  5. HERCEPTIN [Suspect]
     Route: 065
     Dates: start: 19981127
  6. HERCEPTIN [Suspect]
     Route: 065
     Dates: start: 19981130
  7. HERCEPTIN [Suspect]
     Route: 065
     Dates: start: 19981211
  8. HERCEPTIN [Suspect]
     Route: 065
     Dates: start: 19981218
  9. HERCEPTIN [Suspect]
     Route: 065
     Dates: start: 19981224
  10. HERCEPTIN [Suspect]
     Route: 065
     Dates: start: 19981231
  11. 5-FU [Concomitant]
  12. VELBAN [Concomitant]
  13. ZOFRAN [Concomitant]
  14. TYLENOL [Concomitant]
  15. ATIVAN [Concomitant]
  16. REGLAN [Concomitant]
  17. AREDIA [Concomitant]
     Route: 065
     Dates: end: 19981211
  18. MORPHINE PUMP [Concomitant]
  19. MORPHINE [Concomitant]
     Route: 048

REACTIONS (13)
  - Death [Fatal]
  - Herpes zoster [Recovered/Resolved]
  - Pain [Unknown]
  - Nausea [Unknown]
  - Mucosal inflammation [Unknown]
  - Constipation [Unknown]
  - Diarrhoea [Unknown]
  - Rash [Unknown]
  - Ill-defined disorder [Unknown]
  - Decreased appetite [Recovered/Resolved]
  - Headache [Unknown]
  - Epistaxis [Recovered/Resolved]
  - Leukopenia [Unknown]
